FAERS Safety Report 20575437 (Version 2)
Quarter: 2025Q2

REPORT INFORMATION
  Report Type: Spontaneous
  Country: US (occurrence: US)
  Receive Date: 20220310
  Receipt Date: 20250611
  Transmission Date: 20250716
  Serious: Yes (Death, Life-Threatening, Hospitalization, Other)
  Sender: AUROBINDO
  Company Number: US-MLMSERVICE-20220224-3393890-1

PATIENT
  Age: 16 Year
  Sex: Male

DRUGS (4)
  1. METHOTREXATE [Suspect]
     Active Substance: METHOTREXATE
     Indication: T-cell lymphoma
     Route: 065
  2. VORICONAZOLE [Concomitant]
     Active Substance: VORICONAZOLE
     Indication: T-cell lymphoma
     Route: 065
  3. AMPHOTERICIN B [Concomitant]
     Active Substance: AMPHOTERICIN B
     Indication: T-cell lymphoma
     Route: 065
  4. MICAFUNGIN [Concomitant]
     Active Substance: MICAFUNGIN SODIUM
     Indication: T-cell lymphoma
     Route: 065

REACTIONS (8)
  - Septic shock [Fatal]
  - Splenic infection fungal [Fatal]
  - Scedosporium infection [Fatal]
  - Pneumonia fungal [Fatal]
  - Fungal skin infection [Fatal]
  - Sinusitis fungal [Fatal]
  - Cerebral fungal infection [Fatal]
  - Febrile neutropenia [Fatal]
